FAERS Safety Report 15867314 (Version 1)
Quarter: 2019Q1

REPORT INFORMATION
  Report Type: Spontaneous
  Country: JP (occurrence: JP)
  Receive Date: 20190125
  Receipt Date: 20190125
  Transmission Date: 20190417
  Serious: Yes (Other)
  Sender: FDA-Public Use
  Company Number: JP-ASTRAZENECA-2018SF56713

PATIENT
  Age: 75 Year
  Sex: Female

DRUGS (1)
  1. TAGRISSO [Suspect]
     Active Substance: OSIMERTINIB
     Indication: NON-SMALL CELL LUNG CANCER
     Route: 048
     Dates: start: 201809

REACTIONS (13)
  - Pyrexia [Unknown]
  - Syncope [Unknown]
  - Headache [Unknown]
  - Blood pressure increased [Unknown]
  - Deafness [Unknown]
  - Dizziness [Unknown]
  - Fall [Unknown]
  - Insomnia [Unknown]
  - Diarrhoea [Unknown]
  - Blood pressure decreased [Unknown]
  - Weight decreased [Unknown]
  - Hypoglycaemia [Unknown]
  - Dry skin [Unknown]

NARRATIVE: CASE EVENT DATE: 2018
